FAERS Safety Report 14283797 (Version 2)
Quarter: 2018Q1

REPORT INFORMATION
  Report Type: Spontaneous
  Country: JP (occurrence: JP)
  Receive Date: 20171213
  Receipt Date: 20180309
  Transmission Date: 20180509
  Serious: Yes (Hospitalization)
  Sender: FDA-Public Use
  Company Number: JP-BAXTER-2017BAX027579

PATIENT
  Age: 40 Year
  Sex: Female

DRUGS (6)
  1. UROMITEXAN 400 MG [Suspect]
     Active Substance: MESNA
     Indication: PULMONARY ARTERIAL HYPERTENSION
     Dosage: INJECTION
     Route: 041
     Dates: start: 20170614, end: 20170614
  2. UROMITEXAN 400 MG [Suspect]
     Active Substance: MESNA
     Dosage: INJECTION
     Route: 041
     Dates: start: 20170712, end: 20170712
  3. ENDOXAN 1G [Suspect]
     Active Substance: CYCLOPHOSPHAMIDE
     Indication: PULMONARY ARTERIAL HYPERTENSION
     Dosage: DOSAGE FORM: INJECTION
     Route: 041
     Dates: start: 20170614, end: 20170614
  4. ENDOXAN 1G [Suspect]
     Active Substance: CYCLOPHOSPHAMIDE
     Dosage: DOSAGE FORM: INJECTION
     Route: 041
     Dates: start: 20170712, end: 20170712
  5. ENDOXAN 1G [Suspect]
     Active Substance: CYCLOPHOSPHAMIDE
     Indication: MIXED CONNECTIVE TISSUE DISEASE
     Dosage: DOSAGE FORM: INJECTION
     Route: 041
     Dates: start: 20170628, end: 20170628
  6. UROMITEXAN 400 MG [Suspect]
     Active Substance: MESNA
     Indication: MIXED CONNECTIVE TISSUE DISEASE
     Dosage: INJECTION
     Route: 041
     Dates: start: 20170628, end: 20170628

REACTIONS (4)
  - Rash [Recovering/Resolving]
  - Pain in extremity [Recovering/Resolving]
  - Pyrexia [Recovering/Resolving]
  - Arthralgia [Recovering/Resolving]

NARRATIVE: CASE EVENT DATE: 20170624
